FAERS Safety Report 6827822-1 (Version None)
Quarter: 2010Q3

REPORT INFORMATION
  Report Type: 
  Country: None (occurrence: None)
  Receive Date: 20100709
  Receipt Date: 20070128
  Transmission Date: 20110219
  Serious: No
  Sender: FDA-Public Use
  Company Number: US-PFIZER INC-2007008370

PATIENT
  Sex: Female
  Weight: 78.47 kg

DRUGS (7)
  1. CHANTIX [Suspect]
     Indication: SMOKING CESSATION THERAPY
     Dates: start: 20070124
  2. METHYLPREDNISOLONE 16MG TAB [Suspect]
     Indication: OBSTRUCTIVE AIRWAYS DISORDER
  3. COMBIVENT [Concomitant]
     Indication: ASTHMA
     Route: 055
  4. COMBIVENT [Concomitant]
     Indication: CHRONIC OBSTRUCTIVE PULMONARY DISEASE
  5. LOTREL [Concomitant]
     Indication: HYPERTENSION
  6. XOPENEX [Concomitant]
     Indication: ASTHMA
     Route: 050
  7. XOPENEX [Concomitant]
     Indication: CHRONIC OBSTRUCTIVE PULMONARY DISEASE

REACTIONS (6)
  - ABNORMAL DREAMS [None]
  - FATIGUE [None]
  - HEADACHE [None]
  - INITIAL INSOMNIA [None]
  - PSYCHOMOTOR HYPERACTIVITY [None]
  - TOBACCO USER [None]
